FAERS Safety Report 4416320-0 (Version None)
Quarter: 2004Q2

REPORT INFORMATION
  Report Type: 
  Country: None (occurrence: None)
  Receive Date: 20040628
  Receipt Date: 20040505
  Transmission Date: 20050107
  Serious: No
  Sender: FDA-Public Use
  Company Number: USA-2004-0014997

PATIENT
  Sex: Male

DRUGS (1)
  1. SPECTRACEF [Suspect]
     Indication: LYMPHADENOPATHY
     Dosage: 200 MG, BID; UNKNOWN
     Route: 065

REACTIONS (2)
  - HYPERSENSITIVITY [None]
  - URTICARIA [None]
